FAERS Safety Report 5056008-9 (Version None)
Quarter: 2006Q3

REPORT INFORMATION
  Report Type: 
  Country: None (occurrence: None)
  Receive Date: 20060720
  Receipt Date: 20060711
  Transmission Date: 20061208
  Serious: Yes (Hospitalization)
  Sender: FDA-Public Use
  Company Number: 2006CG01213

PATIENT
  Age: 8440 Day
  Sex: Female

DRUGS (8)
  1. NEXIUM [Suspect]
     Route: 048
     Dates: start: 20060318, end: 20060410
  2. BIPROFENID [Interacting]
     Route: 048
     Dates: start: 20060318
  3. BIPROFENID [Interacting]
     Route: 048
     Dates: end: 20060410
  4. METHOTREXATE [Interacting]
     Dosage: 5 MG ON MONDAY + 2.5 MG ON TUESDAY
     Route: 048
     Dates: start: 20060124, end: 20060410
  5. PREDNISOLONE [Concomitant]
     Dates: start: 20051104, end: 20060318
  6. SPECIAFOLDINE [Concomitant]
     Dates: start: 20060124
  7. PROTON PUMP INHIBITORS [Concomitant]
     Dates: start: 20050201, end: 20050401
  8. PROTON PUMP INHIBITORS [Concomitant]
     Dates: start: 20051004, end: 20060401

REACTIONS (7)
  - APHTHOUS STOMATITIS [None]
  - ARTHRALGIA [None]
  - DRUG INTERACTION [None]
  - GRANULOMA [None]
  - MUCOSAL INFLAMMATION [None]
  - OESOPHAGITIS ULCERATIVE [None]
  - STOMACH GRANULOMA [None]
